FAERS Safety Report 9422449 (Version 5)
Quarter: 2014Q2

REPORT INFORMATION
  Report Type: Report from Study
  Country: US (occurrence: US)
  Receive Date: 20130726
  Receipt Date: 20140611
  Transmission Date: 20141212
  Serious: Yes (Hospitalization)
  Sender: FDA-Public Use
  Company Number: US-JNJFOC-20130711371

PATIENT
  Age: 78 Year
  Sex: Female
  Weight: 109.77 kg

DRUGS (8)
  1. XARELTO [Suspect]
     Indication: CEREBROVASCULAR ACCIDENT PROPHYLAXIS
     Route: 048
     Dates: start: 20130329, end: 20130715
  2. XARELTO [Suspect]
     Indication: ATRIAL FIBRILLATION
     Route: 048
     Dates: start: 20130329, end: 20130715
  3. ASPIRIN [Suspect]
     Indication: CARDIAC DISORDER
     Route: 065
     Dates: start: 20090807
  4. METOPROLOL TARTRATE [Concomitant]
     Indication: HYPERTENSION
     Route: 048
     Dates: start: 20090807
  5. METOPROLOL TARTRATE [Concomitant]
     Indication: HYPERTENSION
     Route: 048
     Dates: start: 20091104
  6. SYNTHROID [Concomitant]
     Indication: HYPOTHYROIDISM
     Route: 048
     Dates: start: 20080117
  7. LASIX [Concomitant]
     Indication: CARDIAC FAILURE CONGESTIVE
     Route: 048
     Dates: start: 20130710
  8. TYLENOL EXTRA STRENGTH [Concomitant]
     Indication: ARTHRITIS
     Dosage: 2 TABS AS NEEDED
     Route: 065
     Dates: start: 20080117

REACTIONS (6)
  - Cardiac failure congestive [Unknown]
  - Dyspnoea exertional [Not Recovered/Not Resolved]
  - Anaemia [Recovering/Resolving]
  - Urosepsis [Recovered/Resolved]
  - Iron deficiency anaemia [Recovering/Resolving]
  - Weight decreased [Unknown]
